FAERS Safety Report 24729203 (Version 2)
Quarter: 2025Q1

REPORT INFORMATION
  Report Type: Spontaneous
  Country: US (occurrence: US)
  Receive Date: 20241213
  Receipt Date: 20250114
  Transmission Date: 20250409
  Serious: Yes (Hospitalization)
  Sender: ABBVIE
  Company Number: US-ABBVIE-6033256

PATIENT
  Age: 57 Year
  Sex: Female
  Weight: 78.925 kg

DRUGS (3)
  1. ARMOUR THYROID [Suspect]
     Active Substance: THYROID, PORCINE
     Indication: Hypothyroidism
     Dosage: 60 MILLIGRAM
     Route: 048
     Dates: end: 2023
  2. ARMOUR THYROID [Suspect]
     Active Substance: THYROID, PORCINE
     Indication: Hypothyroidism
     Dosage: 60 MILLIGRAM
     Route: 048
     Dates: start: 202402
  3. NP THYROID [Suspect]
     Active Substance: LEVOTHYROXINE\LIOTHYRONINE
     Indication: Product used for unknown indication
     Route: 048
     Dates: start: 202307, end: 202402

REACTIONS (11)
  - Blood pressure increased [Recovered/Resolved]
  - COVID-19 [Unknown]
  - Blood thyroid stimulating hormone decreased [Recovered/Resolved]
  - Ear infection [Recovered/Resolved]
  - Tinnitus [Not Recovered/Not Resolved]
  - Malaise [Unknown]
  - Weight decreased [Unknown]
  - Hypertension [Unknown]
  - Investigation abnormal [Unknown]
  - Heart rate increased [Recovered/Resolved]
  - Pharyngeal swelling [Recovered/Resolved]

NARRATIVE: CASE EVENT DATE: 20230101
